FAERS Safety Report 19226023 (Version 2)
Quarter: 2021Q2

REPORT INFORMATION
  Report Type: Spontaneous
  Country: US (occurrence: US)
  Receive Date: 20210506
  Receipt Date: 20210518
  Transmission Date: 20210717
  Serious: Yes (Hospitalization)
  Sender: FDA-Public Use
  Company Number: US-ROCHE-2820839

PATIENT
  Sex: Female
  Weight: 34.05 kg

DRUGS (4)
  1. METOCLOPRAMIDE. [Concomitant]
     Active Substance: METOCLOPRAMIDE
  2. TYLENOL [Concomitant]
     Active Substance: ACETAMINOPHEN
  3. EVRYSDI [Suspect]
     Active Substance: RISDIPLAM
     Indication: PRODUCT USED FOR UNKNOWN INDICATION
     Route: 065
     Dates: start: 202008
  4. ZOFRAN [Concomitant]
     Active Substance: ONDANSETRON HYDROCHLORIDE

REACTIONS (5)
  - Pain [Unknown]
  - Urosepsis [Recovered/Resolved]
  - Nausea [Unknown]
  - Bladder pain [Not Recovered/Not Resolved]
  - Bladder disorder [Unknown]
